FAERS Safety Report 21952421 (Version 2)
Quarter: 2023Q1

REPORT INFORMATION
  Report Type: Spontaneous
  Country: JP (occurrence: None)
  Receive Date: 20230203
  Receipt Date: 20230309
  Transmission Date: 20230418
  Serious: Yes (Other)
  Sender: FDA-Public Use
  Company Number: 2023A026232

PATIENT
  Age: 86 Year
  Sex: Male

DRUGS (8)
  1. LOKELMA [Suspect]
     Active Substance: SODIUM ZIRCONIUM CYCLOSILICATE
     Indication: Hyperkalaemia
     Route: 048
     Dates: start: 20220414
  2. LOKELMA [Suspect]
     Active Substance: SODIUM ZIRCONIUM CYCLOSILICATE
     Indication: Hyperkalaemia
     Route: 048
     Dates: start: 20220412, end: 20220413
  3. ASPIRIN [Concomitant]
     Active Substance: ASPIRIN
  4. ATORVASTATIN CALCIUM\EZETIMIBE [Concomitant]
     Active Substance: ATORVASTATIN CALCIUM\EZETIMIBE
  5. ALLOPURINOL [Concomitant]
     Active Substance: ALLOPURINOL
  6. FAMOTIDINE [Concomitant]
     Active Substance: FAMOTIDINE
  7. ALFAROL [Concomitant]
     Active Substance: ALFACALCIDOL
  8. MAGNESIUM OXIDE [Concomitant]
     Active Substance: MAGNESIUM OXIDE

REACTIONS (4)
  - Cardiac failure [Unknown]
  - Drug ineffective [Unknown]
  - Weight increased [Unknown]
  - Oedema [Unknown]
